FAERS Safety Report 8965755 (Version 1)
Quarter: 2012Q4

REPORT INFORMATION
  Report Type: Spontaneous
  Country: GB (occurrence: None)
  Receive Date: 20121206
  Receipt Date: 20121206
  Transmission Date: 20130627
  Serious: Yes (Hospitalization, Other)
  Sender: FDA-Public Use
  Company Number: 2012SP003991

PATIENT
  Age: 58 Year
  Sex: Male

DRUGS (20)
  1. EPIRUBICIN [Suspect]
     Indication: ADENOCARCINOMA GASTRIC
  2. OXALIPLATIN [Suspect]
     Indication: ADENOCARCINOMA GASTRIC
  3. CAPECITABINE [Suspect]
     Indication: ADENOCARCINOMA GASTRIC
  4. CLOZARIL (CLOZAPINE) [Suspect]
     Indication: SCHIZOPHRENIA
     Route: 048
  5. ASCORBIC ACID [Concomitant]
  6. ERGOCALCIFEROL [Concomitant]
  7. NICOTINAMIDE [Concomitant]
  8. PYRIDOXINE HYDROCHLORIDE [Concomitant]
  9. RETINOL PALMITATE [Concomitant]
  10. RIBOFLAVIN [Concomitant]
  11. THIAMINE HYDROCHLORIDE [Concomitant]
  12. VITAMIN A PALMITATE / 00056001 / [Concomitant]
  13. HALOPERIDOL [Concomitant]
  14. ADENOSINE TRIPHOSPHATE [Suspect]
  15. CRATAEGUS / 01349301 / [Concomitant]
  16. MISTELTOE [Concomitant]
  17. POTASSIUM ASPARTATE [Concomitant]
  18. TROXERUTIN [Concomitant]
  19. PROCYCLIDINE [Concomitant]
  20. THIAMIN [Concomitant]

REACTIONS (9)
  - Obstruction gastric [None]
  - Neutrophil count decreased [None]
  - Differential white blood cell count abnormal [None]
  - Platelet count decreased [None]
  - Malaise [None]
  - Vomiting [None]
  - Diarrhoea [None]
  - Weight decreased [None]
  - White blood cell count increased [None]
